FAERS Safety Report 20814314 (Version 2)
Quarter: 2022Q2

REPORT INFORMATION
  Report Type: Report from Study
  Country: CO (occurrence: CO)
  Receive Date: 20220511
  Receipt Date: 20220614
  Transmission Date: 20220721
  Serious: Yes (Hospitalization, Other)
  Sender: FDA-Public Use
  Company Number: CO-ABBVIE-22K-036-4385710-00

PATIENT
  Sex: Female
  Weight: 60 kg

DRUGS (2)
  1. ZEMPLAR [Suspect]
     Active Substance: PARICALCITOL
     Indication: Hyperparathyroidism secondary
     Route: 042
     Dates: start: 20170515, end: 20220505
  2. ZEMPLAR [Suspect]
     Active Substance: PARICALCITOL
     Indication: Chronic kidney disease

REACTIONS (13)
  - Dyspnoea [Unknown]
  - Haematuria [Unknown]
  - Cardiac disorder [Not Recovered/Not Resolved]
  - Feeling cold [Not Recovered/Not Resolved]
  - Anaemia [Recovering/Resolving]
  - Rectal haemorrhage [Recovering/Resolving]
  - Haematemesis [Recovering/Resolving]
  - Gastrointestinal disorder [Recovering/Resolving]
  - Diverticulum [Recovering/Resolving]
  - Mental disorder [Recovering/Resolving]
  - Asthenia [Recovering/Resolving]
  - Appetite disorder [Recovering/Resolving]
  - Discomfort [Recovering/Resolving]

NARRATIVE: CASE EVENT DATE: 20220101
